FAERS Safety Report 13363374 (Version 14)
Quarter: 2018Q2

REPORT INFORMATION
  Report Type: Spontaneous
  Country: US (occurrence: US)
  Receive Date: 20170323
  Receipt Date: 20180430
  Transmission Date: 20180711
  Serious: Yes (Congenital Anomaly, Other)
  Sender: FDA-Public Use
  Company Number: PHEH2017US008460

PATIENT
  Sex: Male

DRUGS (1)
  1. ZOFRAN [Suspect]
     Active Substance: ONDANSETRON HYDROCHLORIDE
     Indication: FOETAL EXPOSURE DURING PREGNANCY
     Dosage: MOTHER^S DOSE: 8 MG, QD
     Route: 064

REACTIONS (47)
  - Cough [Unknown]
  - Pectus excavatum [Unknown]
  - Ear neoplasm [Unknown]
  - Tonsillar hypertrophy [Unknown]
  - Otorrhoea [Unknown]
  - Conjunctivitis [Unknown]
  - Granuloma [Unknown]
  - Nasal congestion [Unknown]
  - Cleft lip [Unknown]
  - Pulmonary oedema [Unknown]
  - Cardiac murmur [Unknown]
  - Adenoidal hypertrophy [Unknown]
  - Corneal scar [Unknown]
  - Cleft palate [Unknown]
  - Conductive deafness [Unknown]
  - Hand fracture [Unknown]
  - Velopharyngeal incompetence [Unknown]
  - Foetal exposure during pregnancy [Unknown]
  - Congenital scoliosis [Unknown]
  - Cryptorchism [Unknown]
  - Testicular torsion [Unknown]
  - Malocclusion [Unknown]
  - Keratitis [Unknown]
  - Musculoskeletal deformity [Unknown]
  - Atrial septal defect [Unknown]
  - Protuberant ear [Unknown]
  - Micrognathia [Unknown]
  - Dysplastic naevus [Unknown]
  - Nose deformity [Unknown]
  - Craniocerebral injury [Unknown]
  - Otitis media [Unknown]
  - Eustachian tube dysfunction [Unknown]
  - Folliculitis [Unknown]
  - Bone cyst [Unknown]
  - Craniosynostosis [Unknown]
  - Right ventricular enlargement [Unknown]
  - Ulcerative keratitis [Unknown]
  - Atelectasis [Unknown]
  - Injury [Unknown]
  - Acne [Unknown]
  - Tympanosclerosis [Unknown]
  - Rhinorrhoea [Unknown]
  - Tachypnoea [Unknown]
  - Synostosis [Unknown]
  - Congenital torticollis [Unknown]
  - Plagiocephaly [Unknown]
  - Bone lesion [Unknown]
